FAERS Safety Report 6812406-1 (Version None)
Quarter: 2010Q3

REPORT INFORMATION
  Report Type: 
  Country: None (occurrence: None)
  Receive Date: 20100701
  Receipt Date: 20100628
  Transmission Date: 20110219
  Serious: Yes (Death)
  Sender: FDA-Public Use
  Company Number: US-CELGENEUS-163-21880-10032104

PATIENT
  Sex: Male
  Weight: 72.64 kg

DRUGS (8)
  1. REVLIMID [Suspect]
     Route: 048
     Dates: start: 20100303, end: 20100305
  2. METOPROLOL TARTRATE [Concomitant]
     Indication: CORONARY ARTERY DISEASE
     Route: 065
     Dates: start: 20090801, end: 20100303
  3. AMLODIPINE [Concomitant]
     Indication: HYPERTENSION
     Route: 065
     Dates: start: 20071217
  4. DOXAZOSIN MESYLATE [Concomitant]
     Route: 065
     Dates: start: 20090105
  5. TYLENOL [Concomitant]
     Indication: PREMEDICATION
     Route: 065
  6. BENADRYL [Concomitant]
     Indication: PREMEDICATION
     Route: 065
  7. RED BLOOD CELLS [Concomitant]
     Route: 051
     Dates: start: 20100303, end: 20100303
  8. PLATELETS [Concomitant]
     Indication: THROMBOCYTOPENIA
     Route: 051
     Dates: start: 20100303, end: 20100303

REACTIONS (3)
  - CARDIAC ARREST [None]
  - HEAD INJURY [None]
  - SYNCOPE [None]
